FAERS Safety Report 5027109-6 (Version None)
Quarter: 2006Q2

REPORT INFORMATION
  Report Type: 
  Country: None (occurrence: None)
  Receive Date: 20060609
  Receipt Date: 20060531
  Transmission Date: 20061013
  Serious: Yes (Other)
  Sender: FDA-Public Use
  Company Number: 2006037471

PATIENT
  Age: 7 Year

DRUGS (3)
  1. GEODON [Suspect]
     Indication: AFFECTIVE DISORDER
     Dosage: 60 MG (20 MG, 3 IN 1 D)
     Dates: start: 20040129, end: 20060305
  2. DIPHENHYDRAMINE HCL [Suspect]
     Indication: FOOD ALLERGY
  3. BENADRYL [Concomitant]

REACTIONS (2)
  - ANTICHOLINERGIC SYNDROME [None]
  - FOOD ALLERGY [None]
